FAERS Safety Report 4278898-X (Version None)
Quarter: 2004Q1

REPORT INFORMATION
  Report Type: 
  Country: None (occurrence: None)
  Receive Date: 20040122
  Receipt Date: 20040116
  Transmission Date: 20041129
  Serious: Yes (Death)
  Sender: FDA-Public Use
  Company Number: US-JNJFOC-20040103286

PATIENT
  Age: 59 Year
  Sex: Female

DRUGS (4)
  1. INFLIXIMAB (INFLIXIMAB, RECOMBINANT) LYOPHILIZED POWDER [Suspect]
     Indication: RHEUMATOID ARTHRITIS
     Dosage: INTRAVENOUS
     Route: 042
     Dates: start: 20010409
  2. VIOXX [Concomitant]
  3. IMURAN [Concomitant]
  4. PLAQUENIL [Concomitant]

REACTIONS (1)
  - STAPHYLOCOCCAL INFECTION [None]
